FAERS Safety Report 10086533 (Version 2)
Quarter: 2014Q2

REPORT INFORMATION
  Report Type: Spontaneous
  Country: US (occurrence: US)
  Receive Date: 20140418
  Receipt Date: 20140604
  Transmission Date: 20141212
  Serious: No
  Sender: FDA-Public Use
  Company Number: US-VERTEX PHARMACEUTICALS INC-2014-001949

PATIENT
  Sex: Female

DRUGS (5)
  1. INCIVEK [Suspect]
     Indication: HEPATITIS C
  2. INTERFERON [Suspect]
     Indication: HEPATITIS C
  3. RIBAVIRIN [Suspect]
     Indication: HEPATITIS C
  4. SIMEPREVIR [Concomitant]
     Dosage: COMPLETED 12 WEEKS
  5. SOFOSBUVIR/OTHER THERAPEUTIC PRODUCTS [Concomitant]
     Dosage: COMPLETED 12 WEEKS

REACTIONS (2)
  - Treatment failure [Recovered/Resolved]
  - Drug ineffective [Unknown]
